FAERS Safety Report 19823113 (Version 1)
Quarter: 2021Q3

REPORT INFORMATION
  Report Type: Spontaneous
  Country: US (occurrence: US)
  Receive Date: 20210913
  Receipt Date: 20210913
  Transmission Date: 20211014
  Serious: No
  Sender: FDA-Public Use
  Company Number: US-ORGANON-O2109USA000706

PATIENT
  Age: 78 Year
  Sex: Female

DRUGS (2)
  1. PREDNISONE. [Concomitant]
     Active Substance: PREDNISONE
     Indication: EOSINOPHILIC CYSTITIS
     Dosage: PROLONGED 20?DAY TAPER
  2. SINGULAIR [Suspect]
     Active Substance: MONTELUKAST SODIUM
     Indication: EOSINOPHILIC CYSTITIS
     Dosage: 10 MILLIGRAM, DAILY EVERY NIGHT AT BEDTIME
     Route: 048

REACTIONS (1)
  - Product use in unapproved indication [Unknown]
